FAERS Safety Report 4797953-9 (Version None)
Quarter: 2005Q3

REPORT INFORMATION
  Report Type: 
  Country: None (occurrence: None)
  Receive Date: 20050929
  Receipt Date: 20050826
  Transmission Date: 20060218
  Serious: No
  Sender: FDA-Public Use
  Company Number: 05P-163-0309445-00

PATIENT
  Age: 81 Year
  Sex: Female
  Weight: 86.1834 kg

DRUGS (2)
  1. HUMIRA [Suspect]
     Indication: ARTHRITIS
     Dosage: 40 MG, 1 IN 2 WK, SUBCUTANEOUS
     Route: 058
     Dates: start: 20041001
  2. PREDNISONE [Concomitant]

REACTIONS (3)
  - ASTHMA [None]
  - CHEST PAIN [None]
  - DIARRHOEA [None]
